FAERS Safety Report 4600135-4 (Version None)
Quarter: 2005Q1

REPORT INFORMATION
  Report Type: 
  Country: None (occurrence: None)
  Receive Date: 20050307
  Receipt Date: 20050222
  Transmission Date: 20050727
  Serious: Yes (Life-Threatening, Hospitalization)
  Sender: FDA-Public Use
  Company Number: AU-BRISTOL-MYERS SQUIBB COMPANY-12870150

PATIENT
  Age: 69 Year
  Sex: Male
  Weight: 70 kg

DRUGS (5)
  1. MUCOMYST [Suspect]
     Indication: PROPHYLAXIS
     Route: 048
     Dates: start: 20050221, end: 20050221
  2. NEXIUM [Concomitant]
     Indication: GASTROOESOPHAGEAL REFLUX DISEASE
  3. COVERSYL [Concomitant]
     Indication: HYPERTENSION
     Dates: start: 20041201
  4. PRAVACHOL [Concomitant]
     Indication: HYPERCHOLESTEROLAEMIA
  5. SOLONE [Concomitant]
     Indication: ANTIINFLAMMATORY THERAPY

REACTIONS (9)
  - ABDOMINAL DISTENSION [None]
  - BACTERIAL INFECTION [None]
  - BLOOD CULTURE POSITIVE [None]
  - BLOOD PRESSURE INCREASED [None]
  - CHILLS [None]
  - HEART RATE INCREASED [None]
  - HYPOAESTHESIA ORAL [None]
  - PARAESTHESIA ORAL [None]
  - TACHYPNOEA [None]
